APPROVED DRUG PRODUCT: VEETIDS '500'
Active Ingredient: PENICILLIN V POTASSIUM
Strength: EQ 500MG BASE
Dosage Form/Route: TABLET;ORAL
Application: A062156 | Product #001
Applicant: APOTHECON SUB BRISTOL MYERS SQUIBB CO
Approved: Approved Prior to Jan 1, 1982 | RLD: No | RS: No | Type: DISCN